FAERS Safety Report 8467888-9 (Version None)
Quarter: 2012Q2

REPORT INFORMATION
  Report Type: 
  Country: None (occurrence: None)
  Receive Date: 20120626
  Receipt Date: 20120621
  Transmission Date: 20120825
  Serious: Yes (Disabling, Other)
  Sender: FDA-Public Use
  Company Number: US-PURDUE-USA_2006_0025940

PATIENT
  Age: 43 Year
  Sex: Male

DRUGS (2)
  1. OXYCODONE HCL [Suspect]
     Indication: ARTHRALGIA
     Dosage: UNK, UNK
  2. OXYCODONE HCL [Suspect]
     Indication: ARTHRITIS

REACTIONS (13)
  - DRUG DEPENDENCE [None]
  - DISABILITY [None]
  - GAIT DISTURBANCE [None]
  - DYSARTHRIA [None]
  - BALANCE DISORDER [None]
  - DISORIENTATION [None]
  - SOMNOLENCE [None]
  - POISONING [None]
  - LIMB INJURY [None]
  - DRUG ABUSE [None]
  - LOSS OF CONSCIOUSNESS [None]
  - HOMICIDE [None]
  - FEELING ABNORMAL [None]
